FAERS Safety Report 10070917 (Version 1)
Quarter: 2014Q2

REPORT INFORMATION
  Report Type: Spontaneous
  Country: CA (occurrence: CA)
  Receive Date: 20140410
  Receipt Date: 20140410
  Transmission Date: 20141212
  Serious: Yes (Life-Threatening, Other)
  Sender: FDA-Public Use
  Company Number: PHHY2014CA040279

PATIENT
  Age: 58 Year
  Sex: Female
  Weight: 54.42 kg

DRUGS (4)
  1. LEFLUNOMIDE SANDOZ [Suspect]
     Dosage: 10 MG, QD
     Route: 048
  2. HYDROCHLOROTHIAZIDE [Concomitant]
     Dosage: UNK UKN, UNK
  3. RAMIPRIL [Concomitant]
     Dosage: UNK
  4. SYNTHROID [Concomitant]
     Dosage: UNK UKN, UNK

REACTIONS (4)
  - Dyspnoea [Recovered/Resolved]
  - Eye discharge [Recovered/Resolved]
  - Gait disturbance [Recovered/Resolved]
  - Pulmonary congestion [Recovered/Resolved]
